FAERS Safety Report 20574165 (Version 1)
Quarter: 2022Q1

REPORT INFORMATION
  Report Type: Spontaneous
  Country: IT (occurrence: IT)
  Receive Date: 20220309
  Receipt Date: 20220309
  Transmission Date: 20220423
  Serious: Yes (Hospitalization)
  Sender: FDA-Public Use
  Company Number: None

PATIENT
  Age: 50 Year
  Sex: Female

DRUGS (3)
  1. FELDENE [Suspect]
     Active Substance: PIROXICAM
     Indication: Arthralgia
     Dosage: 40 MG, 1X/DAY
     Route: 030
     Dates: start: 20220209, end: 20220216
  2. RAMIPRIL [Concomitant]
     Active Substance: RAMIPRIL
     Dosage: UNK
  3. THIOCOLCHICOSIDE [Concomitant]
     Active Substance: THIOCOLCHICOSIDE
     Dosage: UNK

REACTIONS (7)
  - Duodenal ulcer [Recovering/Resolving]
  - Rectal haemorrhage [Recovering/Resolving]
  - Renal failure [Recovering/Resolving]
  - Substance abuse [Recovering/Resolving]
  - Haematemesis [Recovering/Resolving]
  - Melaena [Recovering/Resolving]
  - Anaemia [Recovering/Resolving]

NARRATIVE: CASE EVENT DATE: 20220216
